FAERS Safety Report 9292732 (Version 1)
Quarter: 2013Q2

REPORT INFORMATION
  Report Type: Spontaneous
  Country: US (occurrence: US)
  Receive Date: 20130515
  Receipt Date: 20130515
  Transmission Date: 20140414
  Serious: Yes (Other)
  Sender: FDA-Public Use
  Company Number: US-RB-054039-13

PATIENT
  Age: 62 Year
  Sex: Female

DRUGS (5)
  1. MUCINEX FAST-MAX SEVERE CONGESTION + COUGH LIQUID [Suspect]
     Indication: INCREASED UPPER AIRWAY SECRETION
     Dosage: TOOK ONE DOSE OF 15MG
     Route: 048
     Dates: start: 20130504
  2. MUCINEX FAST-MAX SEVERE CONGESTION + COUGH LIQUID [Suspect]
  3. MUCINEX FAST-MAX SEVERE CONGESTION + COUGH LIQUID [Suspect]
  4. PROVENTIL [Concomitant]
     Indication: PRODUCT USED FOR UNKNOWN INDICATION
  5. HYDROCHLOROTHIAZIDE [Concomitant]
     Indication: PRODUCT USED FOR UNKNOWN INDICATION

REACTIONS (4)
  - Swelling face [Not Recovered/Not Resolved]
  - Lip swelling [Not Recovered/Not Resolved]
  - Dyspnoea [Not Recovered/Not Resolved]
  - Unevaluable event [Not Recovered/Not Resolved]
